FAERS Safety Report 13009849 (Version 5)
Quarter: 2017Q2

REPORT INFORMATION
  Report Type: Spontaneous
  Country: US (occurrence: US)
  Receive Date: 20161208
  Receipt Date: 20170523
  Transmission Date: 20170830
  Serious: Yes (Hospitalization, Other)
  Sender: FDA-Public Use
  Company Number: US-BAYER-2016-231489

PATIENT
  Age: 40 Year
  Sex: Female
  Weight: 105.67 kg

DRUGS (2)
  1. MIRENA [Suspect]
     Active Substance: LEVONORGESTREL
     Indication: MENORRHAGIA
     Dosage: 20 MCG/24HR, CONT
     Route: 015
     Dates: start: 20100129, end: 201502
  2. IODINE. [Concomitant]
     Active Substance: IODINE
     Indication: INFECTION PROPHYLAXIS
     Dosage: UNK
     Dates: start: 20100129, end: 20100129

REACTIONS (12)
  - Menorrhagia [None]
  - Procedural haemorrhage [None]
  - Drug ineffective [None]
  - Depression [None]
  - Embedded device [None]
  - Procedural haemorrhage [None]
  - Haemorrhagic ovarian cyst [None]
  - Uterine leiomyoma [None]
  - Procedural pain [None]
  - Device difficult to use [None]
  - Device breakage [None]
  - Complication of device removal [None]

NARRATIVE: CASE EVENT DATE: 20141121
